FAERS Safety Report 13121658 (Version 1)
Quarter: 2017Q1

REPORT INFORMATION
  Report Type: Spontaneous
  Country: FR (occurrence: FR)
  Receive Date: 20170117
  Receipt Date: 20170117
  Transmission Date: 20170428
  Serious: Yes (Other)
  Sender: FDA-Public Use
  Company Number: FR-PFIZER INC-2017010746

PATIENT
  Age: 59 Year
  Sex: Female

DRUGS (6)
  1. PACLITAXEL HOSPIRA [Concomitant]
     Active Substance: PACLITAXEL
     Indication: BREAST CANCER
     Dosage: 141 MG, CYCLIC (3 TIMES PER CYCLE/ AT DAY 1, DAY 8 AND DAY 15))
     Route: 042
     Dates: start: 20160523, end: 20161219
  2. METHYLPREDNISOLONE MYLAN /00049602/ [Concomitant]
     Active Substance: METHYLPREDNISOLONE SODIUM SUCCINATE
     Indication: PREMEDICATION
     Dosage: 5 MG, CYCLIC (3 TIMES PER CYCLE)
     Route: 042
     Dates: start: 20160523, end: 20161219
  3. ONDANSETRON ACCORD [Concomitant]
     Active Substance: ONDANSETRON
     Indication: PREMEDICATION
     Dosage: 8 MG, CYCLIC (3 TIMES PER CYCLE)
     Route: 042
     Dates: start: 20160503
  4. POLARAMINE [Concomitant]
     Active Substance: DEXCHLORPHENIRAMINE MALEATE
     Indication: PREMEDICATION
     Dosage: 5 MG, CYCLIC (3 TIMES PER CYCLE)
     Route: 042
     Dates: start: 20160523, end: 20161219
  5. AZANTAC [Concomitant]
     Active Substance: RANITIDINE HYDROCHLORIDE
     Indication: PREMEDICATION
     Dosage: 250 MG, CYCLIC (3 TIMES PER CYCLE)
     Route: 042
     Dates: start: 20160523, end: 20161119
  6. CARBOPLATINE HOSPIRA [Suspect]
     Active Substance: CARBOPLATIN
     Indication: OVARIAN CANCER
     Dosage: 685 MG, CYCLIC (AT DAY 1)
     Route: 042
     Dates: start: 20160523, end: 20161205

REACTIONS (11)
  - Hypertension [Recovered/Resolved]
  - Vertigo [Unknown]
  - Rash [Recovered/Resolved]
  - Palatal oedema [Unknown]
  - Chest discomfort [Unknown]
  - Hypersensitivity [Recovered/Resolved]
  - Syncope [Unknown]
  - Musculoskeletal discomfort [Unknown]
  - Respiratory tract irritation [Unknown]
  - Chest pain [Unknown]
  - Tachycardia [Recovered/Resolved]

NARRATIVE: CASE EVENT DATE: 20161114
